FAERS Safety Report 8771811 (Version 2)
Quarter: 2013Q1

REPORT INFORMATION
  Report Type: Spontaneous
  Country: CA (occurrence: CA)
  Receive Date: 20120905
  Receipt Date: 20130307
  Transmission Date: 20140127
  Serious: Yes (Life-Threatening, Hospitalization)
  Sender: FDA-Public Use
  Company Number: CA-B.I. PHARMACEUTICALS,INC./RIDGEFIELD-2012-CN-01801CN

PATIENT
  Age: 86 Year
  Sex: Female

DRUGS (5)
  1. PRADAX [Suspect]
     Indication: ATRIAL FIBRILLATION
     Dosage: 220 MG
     Route: 048
     Dates: start: 20120807
  2. SYNTHROID [Concomitant]
  3. LIPITOR [Concomitant]
  4. SOTACOR [Concomitant]
  5. ADALAT [Concomitant]

REACTIONS (2)
  - Lower gastrointestinal haemorrhage [Recovered/Resolved]
  - Adenocarcinoma of colon [Recovered/Resolved]
